FAERS Safety Report 23981562 (Version 1)
Quarter: 2024Q2

REPORT INFORMATION
  Report Type: Spontaneous
  Country: PT (occurrence: PT)
  Receive Date: 20240617
  Receipt Date: 20240617
  Transmission Date: 20240716
  Serious: Yes (Other)
  Sender: FDA-Public Use
  Company Number: PT-EPICPHARMA-PT-2024EPCLIT00685

PATIENT
  Age: 72 Year
  Sex: Female

DRUGS (1)
  1. AZITHROMYCIN [Suspect]
     Active Substance: AZITHROMYCIN
     Indication: Upper respiratory tract infection
     Route: 065

REACTIONS (2)
  - Delirium [Recovered/Resolved]
  - Product use in unapproved indication [Unknown]
